FAERS Safety Report 12890817 (Version 2)
Quarter: 2016Q4

REPORT INFORMATION
  Report Type: Spontaneous
  Country: US (occurrence: US)
  Receive Date: 20161027
  Receipt Date: 20161122
  Transmission Date: 20170207
  Serious: Yes (Other)
  Sender: FDA-Public Use
  Company Number: US-PFIZER INC-2016497660

PATIENT
  Age: 21 Day
  Sex: Female
  Weight: 3.82 kg

DRUGS (3)
  1. KETAMINE HCL [Suspect]
     Active Substance: KETAMINE HYDROCHLORIDE
     Dosage: 12.5 MG, SINGLE
     Route: 030
  2. ATROPINE. [Concomitant]
     Active Substance: ATROPINE
     Dosage: 0.1 MG, GIVEN 45 MINUTES PRIOR TO INDUCTION
  3. KETAMINE HCL [Suspect]
     Active Substance: KETAMINE HYDROCHLORIDE
     Dosage: 50 MG, SINGLE
     Route: 030

REACTIONS (2)
  - Respiratory depression [Recovered/Resolved]
  - Respiratory arrest [Recovered/Resolved]
